FAERS Safety Report 19707772 (Version 1)
Quarter: 2021Q3

REPORT INFORMATION
  Report Type: Spontaneous
  Country: US (occurrence: US)
  Receive Date: 20210817
  Receipt Date: 20210817
  Transmission Date: 20211014
  Serious: No
  Sender: FDA-Public Use
  Company Number: US-PFIZER INC-2021454410

PATIENT
  Age: 59 Year
  Sex: Male
  Weight: 102.95 kg

DRUGS (4)
  1. VYNDAQEL [Suspect]
     Active Substance: TAFAMIDIS MEGLUMINE
     Indication: LEFT VENTRICULAR HYPERTROPHY
  2. VYNDAQEL [Suspect]
     Active Substance: TAFAMIDIS MEGLUMINE
     Indication: CARDIAC AMYLOIDOSIS
     Dosage: 20 MG, 4X/DAY (80 MG, 4 CAPSULE, EVERY DAY)
     Route: 048
  3. VYNDAQEL [Suspect]
     Active Substance: TAFAMIDIS MEGLUMINE
     Indication: CONGESTIVE CARDIOMYOPATHY
  4. LASIX HIGH DOSE [Suspect]
     Active Substance: FUROSEMIDE
     Dosage: 20 MG, DAILY

REACTIONS (2)
  - Weight increased [Unknown]
  - Dyspnoea [Unknown]
